FAERS Safety Report 16149510 (Version 1)
Quarter: 2019Q2

REPORT INFORMATION
  Report Type: Spontaneous
  Country: US (occurrence: US)
  Receive Date: 20190227
  Receipt Date: 20190227
  Transmission Date: 20190711
  Serious: No
  Sender: FDA-Public Use
  Company Number: None

PATIENT
  Age: 44 Year
  Sex: Female
  Weight: 96.62 kg

DRUGS (2)
  1. RASUVO [Suspect]
     Active Substance: METHOTREXATE SODIUM
     Indication: UVEITIS
     Route: 058
     Dates: start: 201902
  2. RASUVO [Suspect]
     Active Substance: METHOTREXATE SODIUM
     Indication: IRIDOCYCLITIS
     Route: 058
     Dates: start: 201902

REACTIONS (1)
  - Myalgia [None]
